FAERS Safety Report 7928152 (Version 2)
Quarter: 2013Q1

REPORT INFORMATION
  Report Type: Spontaneous
  Country: VE (occurrence: VE)
  Receive Date: 20110503
  Receipt Date: 20130220
  Transmission Date: 20140127
  Serious: Yes (Other)
  Sender: FDA-Public Use
  Company Number: PHHY2011VE36613

PATIENT
  Age: 81 Year
  Sex: Female

DRUGS (5)
  1. ACLASTA [Suspect]
     Indication: OSTEOPOROSIS
     Dosage: 5 MG ANNUALLY
     Route: 042
  2. NEURONTIN [Concomitant]
     Indication: NEUROPATHY PERIPHERAL
     Dosage: 600 MG, DAILY
     Route: 048
     Dates: start: 2009
  3. FLOTAC                                  /CHL/ [Concomitant]
     Indication: PAIN
     Dosage: 150 MG, UNK
     Route: 048
     Dates: start: 2009
  4. IDEOS [Concomitant]
     Indication: CALCIUM DEFICIENCY
     Dosage: 500 MG, UNK
     Route: 048
  5. FOSAMAX [Concomitant]
     Indication: OSTEOPOROSIS
     Dosage: 70 MG, DAILY
     Route: 048

REACTIONS (3)
  - Spinal fracture [Unknown]
  - Nerve root compression [Unknown]
  - Nerve root injury [Unknown]
